FAERS Safety Report 23212824 (Version 1)
Quarter: 2023Q4

REPORT INFORMATION
  Report Type: Spontaneous
  Country: BR (occurrence: BR)
  Receive Date: 20231121
  Receipt Date: 20231121
  Transmission Date: 20240110
  Serious: Yes (Life-Threatening, Other)
  Sender: FDA-Public Use
  Company Number: BR-TAKEDA-2023TUS111273

PATIENT
  Sex: Male
  Weight: 90 kg

DRUGS (4)
  1. LISDEXAMFETAMINE DIMESYLATE [Suspect]
     Active Substance: LISDEXAMFETAMINE DIMESYLATE
     Indication: Product used for unknown indication
     Dosage: 1 DOSAGE FORM, QD
     Route: 065
  2. PRISTIQ EXTENDED-RELEASE [Concomitant]
     Active Substance: DESVENLAFAXINE SUCCINATE
     Dosage: 100 MILLIGRAM
     Route: 065
  3. CLONAZEPAM [Concomitant]
     Active Substance: CLONAZEPAM
     Indication: Somnolence
     Dosage: UNK
     Route: 065
  4. DIAZEPAM [Concomitant]
     Active Substance: DIAZEPAM
     Indication: Somnolence
     Dosage: UNK
     Route: 065

REACTIONS (18)
  - Suicide attempt [Unknown]
  - Lymph node tuberculosis [Unknown]
  - Drug dependence [Unknown]
  - Drug abuse [Unknown]
  - Hallucination [Unknown]
  - Product packaging quantity issue [Unknown]
  - Personality disorder [Unknown]
  - Treatment noncompliance [Unknown]
  - Inability to afford medication [Unknown]
  - Therapeutic product effect decreased [Unknown]
  - Mouth injury [Unknown]
  - Mouth ulceration [Unknown]
  - Tooth loss [Unknown]
  - Feeling abnormal [Unknown]
  - Aggression [Unknown]
  - Middle insomnia [Unknown]
  - Insomnia [Unknown]
  - Product use issue [Unknown]
